FAERS Safety Report 5612181-2 (Version None)
Quarter: 2008Q1

REPORT INFORMATION
  Report Type: 
  Country: None (occurrence: None)
  Receive Date: 20080131
  Receipt Date: 20080131
  Transmission Date: 20080703
  Serious: Yes (Other)
  Sender: FDA-Public Use
  Company Number: None

PATIENT
  Age: 72 Year
  Sex: Male
  Weight: 106.5953 kg

DRUGS (1)
  1. VYTORIN [Suspect]
     Indication: BLOOD CHOLESTEROL
     Dosage: 40/10 MGMS  1 PER DAY PO
     Route: 048
     Dates: start: 20050818, end: 20080114

REACTIONS (2)
  - ARTHRITIS [None]
  - MOVEMENT DISORDER [None]
